FAERS Safety Report 14280266 (Version 1)
Quarter: 2017Q4

REPORT INFORMATION
  Report Type: Spontaneous
  Country: US (occurrence: US)
  Receive Date: 20171212
  Receipt Date: 20171212
  Transmission Date: 20180321
  Serious: No
  Sender: FDA-Public Use
  Company Number: None

PATIENT
  Age: 24 Year
  Sex: Male
  Weight: 54 kg

DRUGS (2)
  1. NEXPLANON [Suspect]
     Active Substance: ETONOGESTREL
     Indication: CONTRACEPTION
     Dosage: ?          QUANTITY:1 IMPLANT;OTHER FREQUENCY:EVERY 3 YEARS;?
     Route: 058
     Dates: start: 20170831
  2. BIOTIN [Concomitant]
     Active Substance: BIOTIN

REACTIONS (2)
  - Night sweats [None]
  - Hot flush [None]

NARRATIVE: CASE EVENT DATE: 20170905
